FAERS Safety Report 8367915-3 (Version None)
Quarter: 2012Q2

REPORT INFORMATION
  Report Type: 
  Country: None (occurrence: None)
  Receive Date: 20120517
  Receipt Date: 20120508
  Transmission Date: 20120825
  Serious: Yes (Hospitalization)
  Sender: FDA-Public Use
  Company Number: GB-TEVA-337857ISR

PATIENT
  Age: 64 Year
  Sex: Female
  Weight: 39.9 kg

DRUGS (1)
  1. PROPRANOLOL [Suspect]
     Dosage: 120 MILLIGRAM;
     Route: 048

REACTIONS (3)
  - WRONG DRUG ADMINISTERED [None]
  - VOMITING [None]
  - OVERDOSE [None]
